FAERS Safety Report 5321018-0 (Version None)
Quarter: 2007Q2

REPORT INFORMATION
  Report Type: 
  Country: None (occurrence: None)
  Receive Date: 20070504
  Receipt Date: 20070501
  Transmission Date: 20071010
  Serious: Yes (Hospitalization, Other)
  Sender: FDA-Public Use
  Company Number: DSU-2007-00142

PATIENT
  Age: 69 Year
  Sex: Male
  Weight: 95.2554 kg

DRUGS (2)
  1. BENICAR [Suspect]
     Indication: HYPERTENSION
     Dosage: 20 MG (20 MG, ONCE A DAY), PER ORAL
     Route: 048
     Dates: start: 20000101
  2. SIMVASTATIN (SIMVASTATIN) (10 MILLIGRAM, TABLET) (SIMVASTATIN) [Concomitant]

REACTIONS (4)
  - BLOOD PRESSURE INCREASED [None]
  - DRUG EFFECT DECREASED [None]
  - HEADACHE [None]
  - RENAL NEOPLASM [None]
